FAERS Safety Report 5748099-4 (Version None)
Quarter: 2008Q2

REPORT INFORMATION
  Report Type: 
  Country: None (occurrence: None)
  Receive Date: 20080521
  Receipt Date: 20080512
  Transmission Date: 20081010
  Serious: Yes (Hospitalization, Other)
  Sender: FDA-Public Use
  Company Number: 2008BI001843

PATIENT
  Age: 44 Year
  Sex: Female

DRUGS (1)
  1. AVONEX [Suspect]
     Indication: MULTIPLE SCLEROSIS
     Dosage: 40 UG QW IM
     Route: 030
     Dates: start: 19971101

REACTIONS (5)
  - ABASIA [None]
  - ANAEMIA [None]
  - BLOOD GLUCOSE INCREASED [None]
  - INCOHERENT [None]
  - MULTIPLE SCLEROSIS RELAPSE [None]
